FAERS Safety Report 5815589-5 (Version None)
Quarter: 2008Q3

REPORT INFORMATION
  Report Type: 
  Country: None (occurrence: None)
  Receive Date: 20080718
  Receipt Date: 20080709
  Transmission Date: 20090109
  Serious: Yes (Death)
  Sender: FDA-Public Use
  Company Number: FR-PFIZER INC-2008059200

PATIENT
  Sex: Female

DRUGS (5)
  1. CAMPTOSAR [Suspect]
  2. FLUOROURACIL [Suspect]
  3. ELOXATIN [Suspect]
     Dates: start: 20070313, end: 20080327
  4. CALCIUM FOLINATE [Suspect]
  5. ACETAMINOPHEN [Concomitant]

REACTIONS (1)
  - HAEMOLYTIC URAEMIC SYNDROME [None]
